FAERS Safety Report 10716206 (Version 1)
Quarter: 2015Q1

REPORT INFORMATION
  Report Type: Spontaneous
  Country: US (occurrence: None)
  Receive Date: 20150115
  Receipt Date: 20150115
  Transmission Date: 20150721
  Serious: No
  Sender: FDA-Public Use
  Company Number: None

PATIENT
  Age: 70 Year
  Sex: Female
  Weight: 87.09 kg

DRUGS (2)
  1. LEVOFLOXACIN. [Suspect]
     Active Substance: LEVOFLOXACIN
     Indication: COUGH
     Dosage: 1 TABLET A DAY ONCE DAILY TAKEN BY MOUTH
     Route: 048
     Dates: start: 20141218, end: 20141224
  2. LEVOFLOXACIN. [Suspect]
     Active Substance: LEVOFLOXACIN
     Indication: BRONCHITIS
     Dosage: 1 TABLET A DAY ONCE DAILY TAKEN BY MOUTH
     Route: 048
     Dates: start: 20141218, end: 20141224

REACTIONS (2)
  - Pain in extremity [None]
  - Arthralgia [None]
